FAERS Safety Report 9130048 (Version 2)
Quarter: 2013Q2

REPORT INFORMATION
  Report Type: Spontaneous
  Country: US (occurrence: US)
  Receive Date: 20130228
  Receipt Date: 20130416
  Transmission Date: 20140414
  Serious: No
  Sender: FDA-Public Use
  Company Number: US-B.I. PHARMACEUTICALS,INC./RIDGEFIELD-2013-BI-04948PF

PATIENT
  Sex: Male

DRUGS (1)
  1. SPIRIVA [Suspect]
     Route: 055

REACTIONS (2)
  - Drug ineffective [Unknown]
  - Product quality issue [Unknown]
